FAERS Safety Report 13921571 (Version 1)
Quarter: 2017Q3

REPORT INFORMATION
  Report Type: Spontaneous
  Country: US (occurrence: None)
  Receive Date: 20170830
  Receipt Date: 20170830
  Transmission Date: 20171127
  Serious: Yes (Disabling)
  Sender: FDA-Public Use
  Company Number: None

PATIENT
  Age: 58 Year
  Sex: Female

DRUGS (5)
  1. VITAMINS [Concomitant]
     Active Substance: VITAMINS
  2. TECFIDERA [Suspect]
     Active Substance: DIMETHYL FUMARATE
     Indication: MULTIPLE SCLEROSIS
     Dosage: 60 CAPSULES TWICE A DAY BY MOUTH
     Route: 048
     Dates: start: 201607, end: 201707
  3. IRBESARTAN/HCTZ [Concomitant]
     Active Substance: HYDROCHLOROTHIAZIDE\IRBESARTAN
  4. BABY ASPIRIN [Concomitant]
     Active Substance: ASPIRIN
  5. MYRBETRIQ [Concomitant]
     Active Substance: MIRABEGRON

REACTIONS (1)
  - Alopecia [None]

NARRATIVE: CASE EVENT DATE: 20160713
